FAERS Safety Report 19194696 (Version 2)
Quarter: 2021Q2

REPORT INFORMATION
  Report Type: Spontaneous
  Country: PL (occurrence: PL)
  Receive Date: 20210429
  Receipt Date: 20210625
  Transmission Date: 20210717
  Serious: No
  Sender: FDA-Public Use
  Company Number: PL-GLAXOSMITHKLINE-PLCH2021023636

PATIENT
  Sex: Male

DRUGS (1)
  1. NICORETTE [Suspect]
     Active Substance: NICOTINE
     Indication: SMOKING CESSATION THERAPY
     Dosage: 30 PICES PER DAYPRODUCT START DATE: 7 YEARS AGO
     Route: 048
     Dates: start: 2014

REACTIONS (1)
  - Nicotine dependence [Unknown]
